FAERS Safety Report 7366162-1 (Version None)
Quarter: 2011Q1

REPORT INFORMATION
  Report Type: 
  Country: None (occurrence: None)
  Receive Date: 20110322
  Receipt Date: 20110308
  Transmission Date: 20110831
  Serious: Yes (Hospitalization)
  Sender: FDA-Public Use
  Company Number: US-JNJFOC-20090602366

PATIENT
  Sex: Female
  Weight: 53.1 kg

DRUGS (2)
  1. INFLIXIMAB [Suspect]
     Indication: INFLAMMATORY BOWEL DISEASE
     Dosage: TOTAL 7 DOSES
     Route: 042
  2. INFLIXIMAB [Suspect]
     Route: 042

REACTIONS (1)
  - SMALL INTESTINAL PERFORATION [None]
